FAERS Safety Report 5909482-7 (Version None)
Quarter: 2008Q4

REPORT INFORMATION
  Report Type: 
  Country: None (occurrence: None)
  Receive Date: 20081006
  Receipt Date: 20080924
  Transmission Date: 20090506
  Serious: Yes (Other)
  Sender: FDA-Public Use
  Company Number: SE-PFIZER INC-2008082258

PATIENT
  Sex: Female

DRUGS (2)
  1. DETRUSITOL SR [Suspect]
     Indication: MICTURITION URGENCY
     Route: 048
  2. CAPTOPRIL [Suspect]
     Indication: HYPERTENSION
     Route: 048

REACTIONS (1)
  - AMNESIA [None]
